FAERS Safety Report 22352072 (Version 2)
Quarter: 2023Q2

REPORT INFORMATION
  Report Type: Spontaneous
  Country: US (occurrence: US)
  Receive Date: 20230522
  Receipt Date: 20230525
  Transmission Date: 20230722
  Serious: No
  Sender: FDA-Public Use
  Company Number: US-PFIZER INC-202300192098

PATIENT
  Age: 65 Year
  Sex: Male
  Weight: 97.52 kg

DRUGS (3)
  1. ETHOSUXIMIDE [Suspect]
     Active Substance: ETHOSUXIMIDE
     Indication: Seizure
     Dosage: 1250 MG, DAILY (5X/DAY)
     Route: 048
     Dates: start: 202304
  2. PHENOBARBITAL [Concomitant]
     Active Substance: PHENOBARBITAL
     Indication: Seizure
     Dosage: 32 MG, 3X/DAY
  3. DILANTIN [Concomitant]
     Active Substance: PHENYTOIN
     Indication: Seizure
     Dosage: UNK
     Dates: start: 202304

REACTIONS (1)
  - No adverse event [Unknown]
